FAERS Safety Report 11055817 (Version 1)
Quarter: 2015Q2

REPORT INFORMATION
  Report Type: Spontaneous
  Country: US (occurrence: US)
  Receive Date: 20150422
  Receipt Date: 20150422
  Transmission Date: 20150821
  Serious: Yes (Other)
  Sender: FDA-Public Use
  Company Number: US-BAYER-2015-160846

PATIENT
  Age: 3 Year
  Sex: Female

DRUGS (9)
  1. CLARITIN [Suspect]
     Active Substance: LORATADINE
  2. KEPPRA [Concomitant]
     Active Substance: LEVETIRACETAM
  3. BACLOFEN. [Concomitant]
     Active Substance: BACLOFEN
  4. LANSOPRAZOLE. [Concomitant]
     Active Substance: LANSOPRAZOLE
  5. FLONASE [Concomitant]
     Active Substance: FLUTICASONE PROPIONATE
  6. ZONISAMIDE. [Concomitant]
     Active Substance: ZONISAMIDE
  7. GABAPENTIN. [Concomitant]
     Active Substance: GABAPENTIN
  8. DIAZEPAM. [Concomitant]
     Active Substance: DIAZEPAM
  9. ROBINUL [Concomitant]
     Active Substance: GLYCOPYRROLATE

REACTIONS (9)
  - Pancreatitis [None]
  - Seizure [None]
  - Pyrexia [None]
  - Muscle spasms [None]
  - Pain [None]
  - Diarrhoea [None]
  - Vomiting [None]
  - Urinary sediment abnormal [None]
  - Haematemesis [None]
